FAERS Safety Report 13847099 (Version 1)
Quarter: 2017Q3

REPORT INFORMATION
  Report Type: Spontaneous
  Country: US (occurrence: US)
  Receive Date: 20170808
  Receipt Date: 20170808
  Transmission Date: 20171127
  Serious: Yes (Death)
  Sender: FDA-Public Use
  Company Number: US-SA-2017SA145383

PATIENT
  Sex: Female

DRUGS (3)
  1. PLAVIX [Suspect]
     Active Substance: CLOPIDOGREL BISULFATE
     Route: 048
  2. ASPIRIN. [Suspect]
     Active Substance: ASPIRIN
     Route: 065
  3. ELIQUIS [Suspect]
     Active Substance: APIXABAN
     Route: 065

REACTIONS (2)
  - Fall [Fatal]
  - Haematoma [Fatal]
